FAERS Safety Report 5985690-4 (Version None)
Quarter: 2008Q4

REPORT INFORMATION
  Report Type: 
  Country: None (occurrence: None)
  Receive Date: 20081208
  Receipt Date: 20080328
  Transmission Date: 20090506
  Serious: No
  Sender: FDA-Public Use
  Company Number: US-AMGEN-KDL271700

PATIENT
  Sex: Female

DRUGS (3)
  1. ENBREL [Suspect]
     Indication: RHEUMATOID ARTHRITIS
     Route: 058
     Dates: start: 19990101
  2. HYDROXYCHLOROQUINE SULFATE [Concomitant]
     Route: 048
     Dates: start: 20020101
  3. LEFLUNOMIDE [Concomitant]
     Route: 048
     Dates: start: 20080101

REACTIONS (6)
  - COUGH [None]
  - FATIGUE [None]
  - HEADACHE [None]
  - NASOPHARYNGITIS [None]
  - SINUS CONGESTION [None]
  - WHEEZING [None]
